FAERS Safety Report 16166648 (Version 1)
Quarter: 2019Q2

REPORT INFORMATION
  Report Type: Other
  Country: US (occurrence: US)
  Receive Date: 20190407
  Receipt Date: 20190407
  Transmission Date: 20190711
  Serious: Yes (Other)
  Sender: FDA-Public Use
  Company Number: US-ACIC FINE CHEMICALS INC-2065438

PATIENT
  Age: 75 Year

DRUGS (1)
  1. LEVETIRACETAM. [Suspect]
     Active Substance: LEVETIRACETAM
     Indication: SEIZURE PROPHYLAXIS
     Route: 042

REACTIONS (2)
  - Agitation [Recovered/Resolved]
  - Delirium [Recovered/Resolved]
